FAERS Safety Report 19442145 (Version 1)
Quarter: 2021Q2

REPORT INFORMATION
  Report Type: Spontaneous
  Country: US (occurrence: US)
  Receive Date: 20210618
  Receipt Date: 20210618
  Transmission Date: 20210717
  Serious: Yes (Other)
  Sender: FDA-Public Use
  Company Number: None

PATIENT
  Age: 57 Year
  Sex: Male
  Weight: 90.7 kg

DRUGS (4)
  1. TICAGRELOR. [Concomitant]
     Active Substance: TICAGRELOR
  2. HEPARIN SODIUM INJECTION [Suspect]
     Active Substance: HEPARIN SODIUM
     Indication: PERCUTANEOUS CORONARY INTERVENTION
     Route: 040
     Dates: start: 20210512
  3. ASPIRIN. [Concomitant]
     Active Substance: ASPIRIN
  4. EPTIFIBATIDE. [Concomitant]
     Active Substance: EPTIFIBATIDE

REACTIONS (1)
  - Coagulation time prolonged [None]

NARRATIVE: CASE EVENT DATE: 20210512
